FAERS Safety Report 14935146 (Version 2)
Quarter: 2018Q2

REPORT INFORMATION
  Report Type: Spontaneous
  Country: GB (occurrence: GB)
  Receive Date: 20180524
  Receipt Date: 20180627
  Transmission Date: 20180711
  Serious: Yes (Life-Threatening)
  Sender: FDA-Public Use
  Company Number: GB-TEVA-2018-GB-896281

PATIENT
  Age: 69 Year
  Sex: Female
  Weight: 105 kg

DRUGS (19)
  1. RANITIDINE. [Concomitant]
     Active Substance: RANITIDINE
     Dosage: 2 DOSAGE FORMS DAILY;
     Route: 065
     Dates: start: 20171121
  2. PERINDOPRIL TERT-BUTYLAMINE [Concomitant]
     Active Substance: PERINDOPRIL ERBUMINE
     Dosage: 1 DOSAGE FORMS DAILY; AT NIGHT.
     Dates: start: 20171121
  3. MAGNESIUM ASPARTATE [Concomitant]
     Active Substance: MAGNESIUM ASPARTATE
     Dosage: 1 DOSAGE FORMS DAILY; FOR 5 DAYS THEN ONE WEEKLY ON A...
     Dates: start: 20180118
  4. PARACETAMOL [Concomitant]
     Active Substance: ACETAMINOPHEN
     Indication: PAIN
     Dosage: UP TO 3 TIMES/DAY.
     Dates: start: 20180119
  5. ACETYLSALICYLIC ACID [Concomitant]
     Active Substance: ASPIRIN
     Dosage: 1 DOSAGE FORMS DAILY; WITH FOOD.
     Dates: start: 20171121, end: 20180307
  6. FOLIC ACID. [Concomitant]
     Active Substance: FOLIC ACID
     Dosage: 1 DOSAGE FORMS DAILY;
     Route: 065
     Dates: start: 20171121
  7. MIRTAZAPINE. [Suspect]
     Active Substance: MIRTAZAPINE
     Route: 065
     Dates: start: 20171121
  8. FULTIUM-D3 [Concomitant]
     Active Substance: CHOLECALCIFEROL
     Indication: VITAMIN D DEFICIENCY
     Dosage: 1 DOSAGE FORMS DAILY;
     Route: 065
     Dates: start: 20170814
  9. MAGNASPARTATE [Concomitant]
     Dosage: ON TUESDAY LUNCHTIME.
     Dates: start: 20171005
  10. NEXIUM [Concomitant]
     Active Substance: ESOMEPRAZOLE MAGNESIUM
     Indication: DYSPEPSIA
     Route: 065
  11. LOPERAMIDE [Concomitant]
     Active Substance: LOPERAMIDE
     Dosage: AFTER EACH LOOSE STOOL.
     Dates: start: 20170223
  12. THIAMINE. [Concomitant]
     Active Substance: THIAMINE
     Dosage: 2 DOSAGE FORMS DAILY; EACH MORNING.
     Dates: start: 20171121
  13. SIMVASTATIN. [Concomitant]
     Active Substance: SIMVASTATIN
     Dosage: 1 DOSAGE FORMS DAILY; AT NIGHT.
     Dates: start: 20171121
  14. POTTASIUM CHLORIDE [Concomitant]
     Active Substance: POTASSIUM CHLORIDE
     Route: 065
  15. ACIDEX [Concomitant]
     Active Substance: CALCIUM CARBONATE\SODIUM ALGINATE\SODIUM BICARBONATE
     Dosage: TAKE 10-20MLS UP TO 4 TIMES DAILY.
     Dates: start: 20170310
  16. VITAMIN B [Concomitant]
     Active Substance: VITAMIN B
     Dosage: 2 DOSAGE FORMS DAILY;
     Route: 065
     Dates: start: 20171121
  17. GABAPENTIN. [Concomitant]
     Active Substance: GABAPENTIN
     Dosage: 3 DOSAGE FORMS DAILY;
     Dates: start: 20171121
  18. LEVOTHYROXINE. [Concomitant]
     Active Substance: LEVOTHYROXINE
     Dosage: 1 DOSAGE FORMS DAILY; BEFORE BREAKFAST.
     Dates: start: 20171121
  19. CETRABEN EMOLLIENT CREAM [Concomitant]
     Dosage: 2 DOSAGE FORMS DAILY;
     Dates: start: 20171122

REACTIONS (2)
  - Platelet count decreased [Not Recovered/Not Resolved]
  - Contusion [Unknown]

NARRATIVE: CASE EVENT DATE: 20180316
